FAERS Safety Report 9345038 (Version 2)
Quarter: 2013Q2

REPORT INFORMATION
  Report Type: Spontaneous
  Country: US (occurrence: US)
  Receive Date: 20130612
  Receipt Date: 20130627
  Transmission Date: 20140414
  Serious: Yes (Other)
  Sender: FDA-Public Use
  Company Number: US-009507513-1306USA003070

PATIENT
  Sex: Female

DRUGS (6)
  1. MIRALAX [Suspect]
     Indication: PRODUCT USED FOR UNKNOWN INDICATION
     Dosage: UNK, UNKNOWN
     Route: 048
     Dates: start: 2011
  2. DILTIAZEM HYDROCHLORIDE [Concomitant]
     Indication: HYPERTENSION
  3. SIMVASTATIN [Concomitant]
     Indication: TYPE 2 DIABETES MELLITUS
  4. SYNTHROID [Concomitant]
     Indication: GLAUCOMA
  5. TIMOLOL [Concomitant]
     Indication: HYPOTHYROIDISM
  6. GLIMEPIRIDE [Concomitant]
     Indication: GASTROINTESTINAL DISORDER

REACTIONS (1)
  - Large intestine perforation [Unknown]
